FAERS Safety Report 13954300 (Version 2)
Quarter: 2017Q4

REPORT INFORMATION
  Report Type: Report from Study
  Country: US (occurrence: US)
  Receive Date: 20170911
  Receipt Date: 20171226
  Transmission Date: 20180320
  Serious: No
  Sender: FDA-Public Use
  Company Number: PHEH2017US029075

PATIENT
  Age: 49 Year
  Weight: 84.8 kg

DRUGS (2)
  1. COSENTYX [Suspect]
     Active Substance: SECUKINUMAB
     Indication: PSORIATIC ARTHROPATHY
  2. COSENTYX [Suspect]
     Active Substance: SECUKINUMAB
     Indication: PSORIASIS
     Dosage: 300 MG (2 PENS), 4W
     Route: 058

REACTIONS (4)
  - Cough [Unknown]
  - Nasopharyngitis [Unknown]
  - Diarrhoea [Recovered/Resolved]
  - Upper respiratory tract infection [Unknown]
